FAERS Safety Report 18531968 (Version 1)
Quarter: 2020Q4

REPORT INFORMATION
  Report Type: Spontaneous
  Country: DE (occurrence: DE)
  Receive Date: 20201123
  Receipt Date: 20201123
  Transmission Date: 20210114
  Serious: Yes (Hospitalization, Other)
  Sender: FDA-Public Use
  Company Number: DE-009507513-2011DEU009219

PATIENT
  Age: 60 Year
  Sex: Male
  Weight: 98 kg

DRUGS (30)
  1. MAGNESIUM (UNSPECIFIED) [Concomitant]
     Active Substance: MAGNESIUM
     Indication: PRODUCT USED FOR UNKNOWN INDICATION
     Dosage: 300 MILLIGRAM, QD (300 MG, QD)
     Route: 065
  2. VALSARTAN. [Suspect]
     Active Substance: VALSARTAN
     Dosage: 80 MILLIGRAM (80 MG)
     Route: 065
     Dates: start: 201406, end: 201808
  3. ASPIRIN. [Concomitant]
     Active Substance: ASPIRIN
     Indication: PRODUCT USED FOR UNKNOWN INDICATION
     Dosage: 100 MILLIGRAM (100 MG)
     Route: 065
     Dates: start: 2007
  4. ATORVASTATIN [Suspect]
     Active Substance: ATORVASTATIN
     Indication: PRODUCT USED FOR UNKNOWN INDICATION
     Dosage: 20 MILLIGRAM, QD (20 MG, QD (EVENING))
     Route: 065
     Dates: start: 2018
  5. ATORVASTATIN 1A PHARMA [Concomitant]
     Active Substance: ATORVASTATIN
     Indication: PRODUCT USED FOR UNKNOWN INDICATION
     Dosage: 20 MILLIGRAM, QD (20 MG, QD (EVENING))
     Route: 065
  6. ASS 500 HEXAL [Concomitant]
     Indication: PRODUCT USED FOR UNKNOWN INDICATION
     Dosage: 1 DOSAGE FORM, QD (1 DF, QD (EVENING))
     Route: 065
  7. GARLIC. [Concomitant]
     Active Substance: GARLIC
     Indication: PRODUCT USED FOR UNKNOWN INDICATION
     Dosage: 2000 MILLIGRAM, QD (1000 MG, BID)
     Route: 065
  8. ADIRO [Concomitant]
     Active Substance: ASPIRIN
     Indication: PRODUCT USED FOR UNKNOWN INDICATION
     Dosage: 100 MILLIGRAM, QD (100 MG, QD)
     Route: 065
  9. BRILIQUE [Concomitant]
     Active Substance: TICAGRELOR
     Indication: PRODUCT USED FOR UNKNOWN INDICATION
     Dosage: 180 MILLIGRAM, QD (90 MG, BID)
     Route: 065
  10. OMEPRAZOLE. [Concomitant]
     Active Substance: OMEPRAZOLE
     Indication: PRODUCT USED FOR UNKNOWN INDICATION
     Dosage: 20 MILLIGRAM, QD
     Route: 065
  11. MOXIFLOXACIN. [Suspect]
     Active Substance: MOXIFLOXACIN
     Indication: PYREXIA
     Dosage: UNK
     Route: 065
     Dates: start: 201901, end: 201901
  12. OMEGA-3 ACID ETHYL ESTERS [Concomitant]
     Active Substance: OMEGA-3-ACID ETHYL ESTERS
     Indication: PRODUCT USED FOR UNKNOWN INDICATION
     Dosage: 2000 MILLIGRAM, QD (1000 MG, BID)
     Route: 065
  13. VALSARTAN. [Suspect]
     Active Substance: VALSARTAN
     Indication: PRODUCT USED FOR UNKNOWN INDICATION
     Dosage: 0.5 DOSAGE FORM, QD (0.5 DF, QD (0.5 INTO 40 MG))
     Route: 065
  14. LIVAZO [Concomitant]
     Active Substance: PITAVASTATIN CALCIUM
     Indication: PRODUCT USED FOR UNKNOWN INDICATION
     Dosage: 2 MILLIGRAM, QD (2 MG, QD)
     Route: 065
  15. ATORVASTATIN [Suspect]
     Active Substance: ATORVASTATIN
     Indication: PRODUCT USED FOR UNKNOWN INDICATION
     Dosage: 80 MILLIGRAM
     Route: 065
  16. EZETIMIBE. [Suspect]
     Active Substance: EZETIMIBE
     Indication: PRODUCT USED FOR UNKNOWN INDICATION
     Dosage: UNK
     Route: 065
     Dates: start: 201706, end: 201709
  17. GARLIC. [Concomitant]
     Active Substance: GARLIC
     Dosage: UNK
  18. TRANGOREX [Suspect]
     Active Substance: AMIODARONE HYDROCHLORIDE
     Indication: PRODUCT USED FOR UNKNOWN INDICATION
     Dosage: 200 MILLIGRAM (200 MG)
     Route: 065
  19. BUTOSOL [Concomitant]
     Indication: PRODUCT USED FOR UNKNOWN INDICATION
     Dosage: 1 DOSAGE FORM, QD (1 DF, QD)
     Route: 065
  20. VALSARTAN. [Suspect]
     Active Substance: VALSARTAN
     Dosage: 40 MILLIGRAM, QD (40 MG, QD (MORNING))
     Route: 065
  21. PENICILLIN (UNSPECIFIED) [Suspect]
     Active Substance: PENICILLIN
     Indication: PRODUCT USED FOR UNKNOWN INDICATION
     Dosage: UNK
     Route: 065
  22. VALSARTAN. [Suspect]
     Active Substance: VALSARTAN
     Dosage: 80 MILLIGRAM, QD (40 MG, BID (MORNING AND EVENING))
     Route: 065
  23. VALSARTAN. [Suspect]
     Active Substance: VALSARTAN
     Dosage: 1 DOSAGE FORM, QD (1 DF (BETWEEN 80 MG AND 160 MG), QD)
     Route: 065
     Dates: start: 201210
  24. VALSARTAN. [Suspect]
     Active Substance: VALSARTAN
     Dosage: 80 MILLIGRAM (80 MG)
     Route: 065
     Dates: start: 201406, end: 201808
  25. TRANKIMAZIN [Concomitant]
     Active Substance: ALPRAZOLAM
     Indication: PRODUCT USED FOR UNKNOWN INDICATION
     Dosage: 0.5 MILLIGRAM, QD (0.25 MG, BID)
     Route: 065
  26. PITAVASTATIN CALCIUM [Concomitant]
     Active Substance: PITAVASTATIN CALCIUM
     Indication: PRODUCT USED FOR UNKNOWN INDICATION
     Dosage: 2 MILLIGRAM, QD (2 MG, QD)
     Route: 065
  27. CHOLECALCIFEROL [Concomitant]
     Active Substance: CHOLECALCIFEROL
     Indication: PRODUCT USED FOR UNKNOWN INDICATION
     Dosage: UNK
     Route: 065
  28. MOXIFLOXACIN. [Suspect]
     Active Substance: MOXIFLOXACIN
     Indication: BRONCHITIS
  29. SIMVASTATIN. [Concomitant]
     Active Substance: SIMVASTATIN
     Indication: PRODUCT USED FOR UNKNOWN INDICATION
     Dosage: UNK
     Route: 065
  30. VALSARTAN. [Suspect]
     Active Substance: VALSARTAN
     Indication: PRODUCT USED FOR UNKNOWN INDICATION
     Dosage: 80 MILLIGRAM, QD (80 MG, QD)
     Route: 065
     Dates: start: 2007

REACTIONS (55)
  - Hypersensitivity [Unknown]
  - Hypercholesterolaemia [Unknown]
  - Blood pressure abnormal [Recovered/Resolved]
  - Bradycardia [Unknown]
  - General physical health deterioration [Unknown]
  - Drug intolerance [Unknown]
  - Spinal stenosis [Unknown]
  - Rhinitis allergic [Unknown]
  - Tinnitus [Unknown]
  - Squamous cell carcinoma [Unknown]
  - Dyspnoea [Unknown]
  - Pain [Unknown]
  - Gait disturbance [Unknown]
  - Heart rate increased [Unknown]
  - Hypertensive crisis [Recovering/Resolving]
  - Osteoarthritis [Unknown]
  - Pyrexia [Recovering/Resolving]
  - Chest pain [Unknown]
  - Sinusitis [Unknown]
  - Haemarthrosis [Unknown]
  - Chest discomfort [Unknown]
  - Cough [Not Recovered/Not Resolved]
  - Back pain [Unknown]
  - Spinal osteoarthritis [Unknown]
  - Viral infection [Unknown]
  - Bronchitis chronic [Recovering/Resolving]
  - Hepatic pain [Recovered/Resolved]
  - Dyspnoea exertional [Unknown]
  - Hypoaesthesia [Unknown]
  - Joint dislocation [Unknown]
  - Asthenia [Unknown]
  - Arteriosclerosis [Unknown]
  - Coronary artery disease [Unknown]
  - Blood pressure increased [Recovering/Resolving]
  - Fall [Unknown]
  - Myocardial infarction [Unknown]
  - Fatigue [Unknown]
  - Muscle spasms [Unknown]
  - Hyperhidrosis [Unknown]
  - Malaise [Unknown]
  - Myalgia [Recovered/Resolved]
  - Cardiac discomfort [Unknown]
  - Limb injury [Unknown]
  - Arrhythmia [Unknown]
  - Contusion [Unknown]
  - Hypertension [Unknown]
  - Productive cough [Unknown]
  - Palpitations [Unknown]
  - Nausea [Unknown]
  - Ventricular extrasystoles [Unknown]
  - Dizziness [Unknown]
  - Asthma [Unknown]
  - Chronic obstructive pulmonary disease [Unknown]
  - C-reactive protein increased [Unknown]
  - Anxiety [Unknown]

NARRATIVE: CASE EVENT DATE: 2007
